FAERS Safety Report 9490619 (Version 1)
Quarter: 2013Q3

REPORT INFORMATION
  Report Type: Spontaneous
  Country: US (occurrence: None)
  Receive Date: 20130828
  Receipt Date: 20130828
  Transmission Date: 20140515
  Serious: No
  Sender: FDA-Public Use
  Company Number: None

PATIENT
  Sex: Female

DRUGS (2)
  1. HUMIRA [Suspect]
     Indication: CROHN^S DISEASE
     Dosage: QOW
     Route: 058
     Dates: start: 20100503
  2. HUMIRA [Suspect]
     Dosage: QOW
     Route: 058
     Dates: start: 20100503

REACTIONS (2)
  - Headache [None]
  - Tenderness [None]
